FAERS Safety Report 4532483-0 (Version None)
Quarter: 2004Q4

REPORT INFORMATION
  Report Type: 
  Country: None (occurrence: None)
  Receive Date: 20041220
  Receipt Date: 20041210
  Transmission Date: 20050328
  Serious: Yes (Death)
  Sender: FDA-Public Use
  Company Number: KR-MERCK-0412KOR00010

PATIENT
  Age: 90 Year
  Sex: Female

DRUGS (6)
  1. PRIMAXIN [Suspect]
     Indication: PNEUMONIA
     Route: 042
     Dates: start: 20041120, end: 20041124
  2. PRIMAXIN [Suspect]
     Route: 042
     Dates: start: 20041205, end: 20041209
  3. ATIVAN [Concomitant]
     Indication: SEDATION
     Route: 051
     Dates: start: 20041121, end: 20041209
  4. VANCOMYCIN [Concomitant]
     Indication: PNEUMONIA
     Route: 051
     Dates: start: 20041120, end: 20041123
  5. DIGOXIN [Concomitant]
     Indication: ARRHYTHMIA
     Route: 051
     Dates: start: 20041208, end: 20041209
  6. LISINOPRIL [Concomitant]
     Indication: HYPERTENSION
     Route: 051
     Dates: start: 20041208, end: 20041209

REACTIONS (1)
  - HYPOXIA [None]
